FAERS Safety Report 11312540 (Version 1)
Quarter: 2015Q3

REPORT INFORMATION
  Report Type: Spontaneous
  Country: US (occurrence: US)
  Receive Date: 20150727
  Receipt Date: 20150727
  Transmission Date: 20151125
  Serious: No
  Sender: FDA-Public Use
  Company Number: US-ABBVIE-15P-163-1375416-00

PATIENT
  Sex: Male

DRUGS (1)
  1. SYNTHROID [Suspect]
     Active Substance: LEVOTHYROXINE SODIUM
     Indication: HYPOTHYROIDISM
     Route: 065
     Dates: end: 201501

REACTIONS (10)
  - Antisocial behaviour [Recovering/Resolving]
  - Thyroid function test abnormal [Recovering/Resolving]
  - Unevaluable event [Recovering/Resolving]
  - Intentional self-injury [Recovering/Resolving]
  - Eating disorder [Recovering/Resolving]
  - Food allergy [Recovering/Resolving]
  - Hyperthyroidism [Recovering/Resolving]
  - Depressed mood [Recovering/Resolving]
  - Decreased eye contact [Recovering/Resolving]
  - Poor quality sleep [Recovering/Resolving]
